FAERS Safety Report 5132094-2 (Version None)
Quarter: 2006Q4

REPORT INFORMATION
  Report Type: 
  Country: None (occurrence: None)
  Receive Date: 20061017
  Receipt Date: 20061002
  Transmission Date: 20070319
  Serious: Yes (Other)
  Sender: FDA-Public Use
  Company Number: US-CVT-062002

PATIENT
  Age: 82 Year
  Sex: Female
  Weight: 72.6 kg

DRUGS (13)
  1. RANEXA [Suspect]
     Indication: ANGINA PECTORIS
     Dosage: 500 MG BID ORAL ; 1000 MG BID ORAL ; 1500 MG BID ORAL ; 500 MG BID ORAL
     Route: 048
     Dates: start: 20060907, end: 20060914
  2. RANEXA [Suspect]
     Indication: ANGINA PECTORIS
     Dosage: 500 MG BID ORAL ; 1000 MG BID ORAL ; 1500 MG BID ORAL ; 500 MG BID ORAL
     Route: 048
     Dates: start: 20060914, end: 20060920
  3. RANEXA [Suspect]
     Indication: ANGINA PECTORIS
     Dosage: 500 MG BID ORAL ; 1000 MG BID ORAL ; 1500 MG BID ORAL ; 500 MG BID ORAL
     Route: 048
     Dates: start: 20060920, end: 20060925
  4. RANEXA [Suspect]
     Indication: ANGINA PECTORIS
     Dosage: 500 MG BID ORAL ; 1000 MG BID ORAL ; 1500 MG BID ORAL ; 500 MG BID ORAL
     Route: 048
     Dates: start: 20060925, end: 20060929
  5. BACTRIM DS (SULFAMETHOXAZOLE, TRIMETROPRIM) [Concomitant]
  6. CRESTOR [Concomitant]
  7. IMDUR [Concomitant]
  8. LASIX [Concomitant]
  9. SYNTHROID [Concomitant]
  10. NORVASC [Concomitant]
  11. PLAVIX [Concomitant]
  12. ZETIA [Concomitant]
  13. TOPROL-XL [Concomitant]

REACTIONS (7)
  - BLOOD CREATININE INCREASED [None]
  - BLOOD PRESSURE SYSTOLIC INCREASED [None]
  - HEART RATE INCREASED [None]
  - MALAISE [None]
  - RENAL ARTERY STENOSIS [None]
  - RENAL DISORDER [None]
  - URINARY TRACT INFECTION [None]
